FAERS Safety Report 10506167 (Version 2)
Quarter: 2016Q4

REPORT INFORMATION
  Report Type: Report from Study
  Country: EG (occurrence: EG)
  Receive Date: 20141009
  Receipt Date: 20161111
  Transmission Date: 20170206
  Serious: Yes (Other)
  Sender: FDA-Public Use
  Company Number: EG-ROCHE-1468171

PATIENT
  Age: 44 Year
  Sex: Female
  Weight: 101 kg

DRUGS (4)
  1. RIBAVIRIN. [Suspect]
     Active Substance: RIBAVIRIN
     Indication: CHRONIC HEPATITIS C
     Route: 048
     Dates: start: 20090119, end: 20100121
  2. PEG-INTERFERON ALFA 2A [Suspect]
     Active Substance: PEGINTERFERON ALFA-2A
     Indication: CHRONIC HEPATITIS C
     Route: 058
     Dates: start: 20090119, end: 20100121
  3. ZYRTEC [Concomitant]
     Active Substance: CETIRIZINE HYDROCHLORIDE
     Route: 048
     Dates: start: 20090216, end: 20090329
  4. PANADOL (EGYPT) [Concomitant]
     Indication: PYREXIA
     Route: 048
     Dates: start: 20090111, end: 20090406

REACTIONS (6)
  - Anxiety [Recovered/Resolved]
  - Depression [Recovered/Resolved]
  - Maternal exposure during pregnancy [Unknown]
  - Erythema multiforme [Recovered/Resolved]
  - Vasculitis [Recovered/Resolved]
  - Anaemia [Recovered/Resolved]

NARRATIVE: CASE EVENT DATE: 20090120
